FAERS Safety Report 11814303 (Version 2)
Quarter: 2016Q1

REPORT INFORMATION
  Report Type: Report from Study
  Country: FR (occurrence: FR)
  Receive Date: 20151209
  Receipt Date: 20160108
  Transmission Date: 20160525
  Serious: Yes (Disabling, Other)
  Sender: FDA-Public Use
  Company Number: FR-BRISTOL-MYERS SQUIBB COMPANY-BMS-2015-053873

PATIENT
  Age: 55 Year
  Sex: Male
  Weight: 98 kg

DRUGS (5)
  1. NIVOLUMAB [Suspect]
     Active Substance: NIVOLUMAB
     Dosage: 291 MG, UNK
     Route: 065
     Dates: start: 20151130
  2. SPASFON                            /00765801/ [Concomitant]
     Active Substance: PHLOROGLUCINOL\1,3,5-TRIMETHOXYBENZENE
     Indication: PRODUCT USED FOR UNKNOWN INDICATION
     Dosage: UNK, PRN
     Route: 065
  3. NIVOLUMAB [Suspect]
     Active Substance: NIVOLUMAB
     Dosage: 294 MG, UNK
     Route: 065
     Dates: start: 20151116
  4. NIVOLUMAB [Suspect]
     Active Substance: NIVOLUMAB
     Indication: METASTATIC MALIGNANT MELANOMA
     Dosage: 285 MG, UNK
     Route: 065
     Dates: start: 20150622, end: 20151130
  5. DOLIPRANE [Concomitant]
     Active Substance: ACETAMINOPHEN
     Indication: PRODUCT USED FOR UNKNOWN INDICATION
     Dosage: UNK, PRN
     Route: 065

REACTIONS (8)
  - Tumour haemorrhage [Unknown]
  - Iridocyclitis [Not Recovered/Not Resolved]
  - Transfusion [Unknown]
  - Lymphocyte count abnormal [Unknown]
  - Platelet disorder [Unknown]
  - Anaemia [Recovering/Resolving]
  - Neutrophil count abnormal [Unknown]
  - Haemoglobin decreased [Unknown]

NARRATIVE: CASE EVENT DATE: 20150725
